FAERS Safety Report 16236239 (Version 3)
Quarter: 2019Q3

REPORT INFORMATION
  Report Type: Spontaneous
  Country: US (occurrence: US)
  Receive Date: 20190425
  Receipt Date: 20190712
  Transmission Date: 20191004
  Serious: Yes (Other)
  Sender: FDA-Public Use
  Company Number: US-SHIRE-US201913532

PATIENT
  Age: 77 Year
  Sex: Female
  Weight: 58.96 kg

DRUGS (1)
  1. XIIDRA [Suspect]
     Active Substance: LIFITEGRAST
     Indication: DRY EYE
     Dosage: 1 GTT DROPS (IN EACH EYE), 2X/DAY:BID
     Route: 047
     Dates: start: 20190412

REACTIONS (2)
  - Ulcerative keratitis [Recovered/Resolved]
  - Instillation site pain [Not Recovered/Not Resolved]

NARRATIVE: CASE EVENT DATE: 20190412
